FAERS Safety Report 7555592-0 (Version None)
Quarter: 2011Q2

REPORT INFORMATION
  Report Type: 
  Country: None (occurrence: None)
  Receive Date: 20110617
  Receipt Date: 20010222
  Transmission Date: 20111010
  Serious: Yes (Hospitalization)
  Sender: FDA-Public Use
  Company Number: PHEH2001US01947

PATIENT
  Sex: Female

DRUGS (3)
  1. INSULIN [Concomitant]
  2. EXELON [Suspect]
     Indication: DEMENTIA ALZHEIMER'S TYPE
     Dosage: 4.5 MG, BID
     Route: 048
     Dates: start: 20001128
  3. EYE DROPS [Concomitant]
     Indication: GLAUCOMA

REACTIONS (1)
  - PNEUMONIA [None]
